FAERS Safety Report 6314149-X (Version None)
Quarter: 2009Q3

REPORT INFORMATION
  Report Type: 
  Country: None (occurrence: None)
  Receive Date: 20090817
  Receipt Date: 20090805
  Transmission Date: 20100115
  Serious: Yes (Hospitalization)
  Sender: FDA-Public Use
  Company Number: 238676K09USA

PATIENT
  Age: 38 Year
  Sex: Female

DRUGS (5)
  1. REBIF [Suspect]
     Indication: MULTIPLE SCLEROSIS
     Dosage: 44 MCG, 3 IN 1 WEEKS, SUBCUTANEOUS
     Route: 058
     Dates: start: 20070129, end: 20090501
  2. BENADRYL [Concomitant]
  3. ADVIL [Concomitant]
  4. UNSPECIFIED INTRAVENOUS STEROIDS (CORTICOSTEROIDS) [Concomitant]
  5. STEROIDS (CORTICOSTEROIDS) [Concomitant]

REACTIONS (4)
  - CONDITION AGGRAVATED [None]
  - HEPATIC FIBROSIS [None]
  - HEPATITIS [None]
  - MULTIPLE SCLEROSIS [None]
